APPROVED DRUG PRODUCT: SULFACEL-15
Active Ingredient: SULFACETAMIDE SODIUM
Strength: 15%
Dosage Form/Route: SOLUTION/DROPS;OPHTHALMIC
Application: A080024 | Product #001
Applicant: OPTOPICS LABORATORIES CORP
Approved: Approved Prior to Jan 1, 1982 | RLD: No | RS: No | Type: DISCN